FAERS Safety Report 4976268-X (Version None)
Quarter: 2006Q2

REPORT INFORMATION
  Report Type: 
  Country: None (occurrence: None)
  Receive Date: 20060412
  Receipt Date: 20060328
  Transmission Date: 20061013
  Serious: Yes (Hospitalization)
  Sender: FDA-Public Use
  Company Number: 2006P1000177

PATIENT
  Age: 71 Year
  Sex: 0

DRUGS (4)
  1. RETEPLASE (RETEPLASE) [Suspect]
     Indication: ACUTE MYOCARDIAL INFARCTION
     Dosage: 5 IU;X2;IV
     Route: 042
     Dates: start: 20041215, end: 20041215
  2. REOPRO [Suspect]
     Indication: ACUTE MYOCARDIAL INFARCTION
     Dosage: SEE IMAGE
     Route: 042
     Dates: start: 20041215, end: 20041215
  3. REOPRO [Suspect]
     Indication: ACUTE MYOCARDIAL INFARCTION
     Dosage: SEE IMAGE
     Route: 042
     Dates: start: 20041215, end: 20041215
  4. HEPARIN [Concomitant]

REACTIONS (1)
  - CORONARY ARTERY DISEASE [None]
